FAERS Safety Report 20595120 (Version 1)
Quarter: 2022Q1

REPORT INFORMATION
  Report Type: Spontaneous
  Country: US (occurrence: None)
  Receive Date: 20220314
  Receipt Date: 20220314
  Transmission Date: 20220423
  Serious: No
  Sender: FDA-Public Use
  Company Number: None

PATIENT
  Age: 75 Year
  Sex: Male

DRUGS (8)
  1. INBRIJA [Suspect]
     Active Substance: LEVODOPA
     Indication: Parkinson^s disease
     Dosage: FREQUENCY : AS NEEDED;?
     Dates: start: 20211006
  2. DULOXETINE [Concomitant]
     Active Substance: DULOXETINE
  3. FISH OIL [Concomitant]
  4. GOCOVRI [Concomitant]
     Active Substance: AMANTADINE
  5. LOSARTAN POTASSIUM [Concomitant]
     Active Substance: LOSARTAN POTASSIUM
  6. MELOXICAM [Concomitant]
     Active Substance: MELOXICAM
  7. MIRTAZAPINE [Concomitant]
     Active Substance: MIRTAZAPINE
  8. RYTARY [Concomitant]
     Active Substance: CARBIDOPA\LEVODOPA

REACTIONS (2)
  - Nausea [None]
  - Depressed level of consciousness [None]

NARRATIVE: CASE EVENT DATE: 20220314
